FAERS Safety Report 23099890 (Version 1)
Quarter: 2023Q4

REPORT INFORMATION
  Report Type: Spontaneous
  Country: TW (occurrence: TW)
  Receive Date: 20231024
  Receipt Date: 20231024
  Transmission Date: 20240110
  Serious: Yes (Hospitalization, Other)
  Sender: FDA-Public Use
  Company Number: TW-PFIZER INC-PV202300169171

PATIENT
  Age: 21 Month
  Sex: Male

DRUGS (6)
  1. VINCRISTINE SULFATE [Suspect]
     Active Substance: VINCRISTINE SULFATE
     Indication: Rhabdomyosarcoma
     Dosage: 1.5 MG/M2, DAILY, ON DAY 1 EVERY 3 WEEKS (VAC REGIMEN)
  2. VINCRISTINE SULFATE [Suspect]
     Active Substance: VINCRISTINE SULFATE
     Dosage: 1.5 MG/M2, DAILY, ON DAY 1 EVERY 3 WEEKS (VEI REGIMEN)
  3. ETOPOSIDE [Suspect]
     Active Substance: ETOPOSIDE
     Indication: Rhabdomyosarcoma
     Dosage: 100 MG/M2, EVERY 3 WEEKS, DAILY, ON DAYS 1-5 (VEI REGIMEN)
  4. DACTINOMYCIN [Suspect]
     Active Substance: DACTINOMYCIN
     Indication: Rhabdomyosarcoma
     Dosage: 0.5 MG/M2, EVERY 3 WEEKS, DAILY, ON DAYS 1-5, (VAC REGIMEN)
  5. CYCLOPHOSPHAMIDE [Suspect]
     Active Substance: CYCLOPHOSPHAMIDE
     Indication: Rhabdomyosarcoma
     Dosage: 2200 MG/M2, EVERY 3 WEEKS, ON DAY 1, DAILY (VAC REGIMEN)
  6. IFOSFAMIDE [Suspect]
     Active Substance: IFOSFAMIDE
     Indication: Rhabdomyosarcoma
     Dosage: 1800 MG/M2, ON DAYS DAYS 1-5, DAILY (VEI REGIMEN)

REACTIONS (2)
  - Venoocclusive liver disease [Recovered/Resolved]
  - Febrile neutropenia [Unknown]
